FAERS Safety Report 12809361 (Version 1)
Quarter: 2016Q4

REPORT INFORMATION
  Report Type: Spontaneous
  Country: US (occurrence: US)
  Receive Date: 20161005
  Receipt Date: 20161005
  Transmission Date: 20170207
  Serious: No
  Sender: FDA-Public Use
  Company Number: US-ASTRAZENECA-2016SF02346

PATIENT
  Age: 971 Month
  Sex: Female
  Weight: 49 kg

DRUGS (4)
  1. SYMBICORT [Suspect]
     Active Substance: BUDESONIDE\FORMOTEROL FUMARATE DIHYDRATE
     Indication: EMPHYSEMA
     Dosage: 160/4.5 MCG ONE PUFF DAILY AT NIGHT
     Route: 055
  2. TEMAZEPAM. [Concomitant]
     Active Substance: TEMAZEPAM
     Dates: start: 2010
  3. ASPRIN [Concomitant]
     Active Substance: ASPIRIN
     Route: 048
     Dates: start: 2011
  4. MONOPRIL [Concomitant]
     Active Substance: FOSINOPRIL SODIUM
     Indication: BLOOD PRESSURE ABNORMAL

REACTIONS (16)
  - Hyperhidrosis [Unknown]
  - Fall [Unknown]
  - Blood pressure increased [Unknown]
  - Eye ulcer [Unknown]
  - Peripheral arthritis [Unknown]
  - Blood sodium decreased [Unknown]
  - Vision blurred [Unknown]
  - Eye disorder [Unknown]
  - Dry eye [Unknown]
  - Sleep disorder [Unknown]
  - Accidental exposure to product [Unknown]
  - Eye pain [Unknown]
  - Muscular weakness [Unknown]
  - Device use issue [Unknown]
  - Product use issue [Unknown]
  - Off label use [Unknown]

NARRATIVE: CASE EVENT DATE: 201608
